FAERS Safety Report 18735074 (Version 1)
Quarter: 2021Q1

REPORT INFORMATION
  Report Type: Spontaneous
  Country: US (occurrence: US)
  Receive Date: 20210113
  Receipt Date: 20210113
  Transmission Date: 20210419
  Serious: Yes (Other)
  Sender: FDA-Public Use
  Company Number: US-ASTRAZENECA-2021A003245

PATIENT
  Sex: Female

DRUGS (2)
  1. SYMBICORT [Suspect]
     Active Substance: BUDESONIDE\FORMOTEROL FUMARATE DIHYDRATE
     Indication: SARS-COV-2 TEST POSITIVE
     Dosage: UNKNOWN DOSE AND FREQUENCY UNKNOWN
     Route: 055
  2. SYMBICORT [Suspect]
     Active Substance: BUDESONIDE\FORMOTEROL FUMARATE DIHYDRATE
     Indication: COVID-19 PNEUMONIA
     Dosage: UNKNOWN DOSE AND FREQUENCY UNKNOWN
     Route: 055

REACTIONS (4)
  - Dysgeusia [Unknown]
  - Nausea [Unknown]
  - Anaphylactic shock [Unknown]
  - Loss of consciousness [Unknown]
